FAERS Safety Report 6015257-3 (Version None)
Quarter: 2008Q4

REPORT INFORMATION
  Report Type: 
  Country: None (occurrence: None)
  Receive Date: 20081219
  Receipt Date: 20081219
  Transmission Date: 20090506
  Serious: Yes (Hospitalization)
  Sender: FDA-Public Use
  Company Number: None

PATIENT
  Sex: Female
  Weight: 74.8 kg

DRUGS (4)
  1. CISPLATIN [Suspect]
     Dosage: 87 MG
  2. DOXORUBICIN HYDROCHLORIDE [Suspect]
     Dosage: 78 MG
  3. TAXOL [Suspect]
     Dosage: 277 MG
  4. NEULASTA [Suspect]
     Dosage: 6 MG

REACTIONS (7)
  - ANAEMIA [None]
  - ASTHENIA [None]
  - DEHYDRATION [None]
  - HYPONATRAEMIA [None]
  - NAUSEA [None]
  - NEUTROPENIA [None]
  - PSYCHOLOGICAL FACTOR AFFECTING MEDICAL CONDITION [None]
